FAERS Safety Report 23592338 (Version 1)
Quarter: 2024Q1

REPORT INFORMATION
  Report Type: Report from Study
  Country: US (occurrence: US)
  Receive Date: 20240304
  Receipt Date: 20240304
  Transmission Date: 20240410
  Serious: Yes (Hospitalization)
  Sender: FDA-Public Use
  Company Number: US-ARGENX-2023-ARGX-US002806

PATIENT

DRUGS (5)
  1. VYVGART [Suspect]
     Active Substance: EFGARTIGIMOD ALFA-FCAB
     Indication: Myasthenia gravis
     Dosage: UNK
     Route: 042
     Dates: start: 20231129
  2. VYVGART [Suspect]
     Active Substance: EFGARTIGIMOD ALFA-FCAB
     Dosage: 400MG/20ML
     Route: 042
  3. VYVGART [Suspect]
     Active Substance: EFGARTIGIMOD ALFA-FCAB
     Dosage: 1200 MG, 1/WEEK 4 WEEKS ON, 4 WEEKS OFF FOR A TOTAL OF 3 CYCLES
     Route: 042
  4. VYVGART [Suspect]
     Active Substance: EFGARTIGIMOD ALFA-FCAB
     Dosage: 1200 MG, 400MG/20ML VIAL
     Route: 042
  5. MESTINON [Concomitant]
     Active Substance: PYRIDOSTIGMINE BROMIDE
     Indication: Product used for unknown indication
     Dosage: UNK
     Route: 065

REACTIONS (11)
  - Jaw cyst [Unknown]
  - Eyelid ptosis [Unknown]
  - Depression [Unknown]
  - Insomnia [Unknown]
  - Treatment delayed [Unknown]
  - Fatigue [Unknown]
  - Dyspnoea [Unknown]
  - Urticaria [Unknown]
  - Therapeutic response decreased [Unknown]
  - Therapeutic response shortened [Unknown]
  - Procedural headache [Recovered/Resolved]

NARRATIVE: CASE EVENT DATE: 20231129
